FAERS Safety Report 5950666-X (Version None)
Quarter: 2008Q4

REPORT INFORMATION
  Report Type: 
  Country: None (occurrence: None)
  Receive Date: 20081022
  Receipt Date: 20080618
  Transmission Date: 20090506
  Serious: No
  Sender: FDA-Public Use
  Company Number: ALL1-2008-01805

PATIENT
  Age: 8 Year
  Sex: Female
  Weight: 39.9 kg

DRUGS (3)
  1. VYVANSE [Suspect]
     Indication: ATTENTION DEFICIT/HYPERACTIVITY DISORDER
     Dosage: 50 MG, 1X/DAY:QD,ORAL
     Route: 048
     Dates: start: 20080501
  2. TRAZODONE HCL [Concomitant]
  3. GUANFACINE HYDROCHLORIDE [Concomitant]

REACTIONS (4)
  - AGGRESSION [None]
  - ANGER [None]
  - INCREASED APPETITE [None]
  - WEIGHT INCREASED [None]
